FAERS Safety Report 18207158 (Version 1)
Quarter: 2020Q3

REPORT INFORMATION
  Report Type: Spontaneous
  Country: US (occurrence: US)
  Receive Date: 20200827
  Receipt Date: 20200827
  Transmission Date: 20201103
  Serious: Yes (Other)
  Sender: FDA-Public Use
  Company Number: None

PATIENT
  Age: 69 Year
  Sex: Female
  Weight: 81 kg

DRUGS (8)
  1. LIPITOR [Concomitant]
     Active Substance: ATORVASTATIN CALCIUM
  2. PRESERVISION [Concomitant]
     Active Substance: MINERALS\VITAMINS
  3. EMLA [Suspect]
     Active Substance: LIDOCAINE\PRILOCAINE
     Indication: LOCAL ANAESTHESIA
     Route: 061
     Dates: start: 20200814, end: 20200814
  4. VITAMIN D [Concomitant]
     Active Substance: VITAMIN D NOS
  5. CENTRUM [Concomitant]
     Active Substance: VITAMINS
  6. PRILOSEC [Concomitant]
     Active Substance: OMEPRAZOLE MAGNESIUM
  7. ZYRTEC [Concomitant]
     Active Substance: CETIRIZINE HYDROCHLORIDE
  8. FISH OIL [Concomitant]
     Active Substance: FISH OIL

REACTIONS (7)
  - Application site exfoliation [None]
  - Application site ulcer [None]
  - Impaired healing [None]
  - Vulvovaginal burning sensation [None]
  - Application site haemorrhage [None]
  - Drug hypersensitivity [None]
  - Application site streaking [None]

NARRATIVE: CASE EVENT DATE: 20200814
